FAERS Safety Report 18534985 (Version 1)
Quarter: 2020Q4

REPORT INFORMATION
  Report Type: Other
  Country: US (occurrence: US)
  Receive Date: 20201123
  Receipt Date: 20201123
  Transmission Date: 20210114
  Serious: Yes (Other)
  Sender: FDA-Public Use
  Company Number: US-KNIGHT THERAPEUTICS (USA) INC.-2096189

PATIENT
  Age: 62 Year
  Sex: Male
  Weight: 96 kg

DRUGS (6)
  1. MELOXICAM. [Concomitant]
     Active Substance: MELOXICAM
  2. NON-STEROIDAL ANTI-INFLAMMATORY DRUG [Concomitant]
     Active Substance: UNSPECIFIED INGREDIENT
  3. ENALAPRIL MALEATE. [Concomitant]
     Active Substance: ENALAPRIL MALEATE
  4. ACETAMINOPHEN. [Concomitant]
     Active Substance: ACETAMINOPHEN
  5. COLCHICINE. [Concomitant]
     Active Substance: COLCHICINE
  6. IMPAVIDO [Suspect]
     Active Substance: MILTEFOSINE
     Indication: CUTANEOUS LEISHMANIASIS

REACTIONS (10)
  - Pyrexia [Recovered/Resolved]
  - Erythema [Recovered/Resolved]
  - Therapy cessation [Recovered/Resolved]
  - Decreased appetite [Recovered/Resolved]
  - Joint swelling [Recovered/Resolved]
  - Gout [Recovered/Resolved]
  - Night sweats [Recovered/Resolved]
  - Blood bilirubin unconjugated increased [Recovered/Resolved]
  - Arthralgia [Recovered/Resolved]
  - Nausea [Recovered/Resolved]
